FAERS Safety Report 10592453 (Version 1)
Quarter: 2014Q4

REPORT INFORMATION
  Report Type: Spontaneous
  Country: TH (occurrence: TH)
  Receive Date: 20141119
  Receipt Date: 20141119
  Transmission Date: 20150529
  Serious: Yes (Hospitalization)
  Sender: FDA-Public Use
  Company Number: PHHY2014TH148839

PATIENT
  Age: 14 Year
  Sex: Male

DRUGS (2)
  1. GPO L ONE [Suspect]
     Active Substance: DEFERIPRONE
     Indication: CHELATION THERAPY
     Dosage: 50 MG/KG, QD, IN 3-4 POSTPRANDIAL DOSES
     Route: 048
  2. DEFEROXAMINE [Suspect]
     Active Substance: DEFEROXAMINE\DEFEROXAMINE MESYLATE
     Indication: CHELATION THERAPY
     Dosage: 45 MG/KG, (40-45MG/KG) OVER 8-12H TWICE WEEKLY
     Route: 058

REACTIONS (5)
  - Cholecystitis acute [Recovered/Resolved]
  - Infection [Recovered/Resolved]
  - Thrombocytopenia [Recovered/Resolved]
  - Neutropenia [Recovered/Resolved]
  - Histiocytosis haematophagic [Recovered/Resolved]
